FAERS Safety Report 4846898-4 (Version None)
Quarter: 2005Q4

REPORT INFORMATION
  Report Type: 
  Country: None (occurrence: None)
  Receive Date: 20051202
  Receipt Date: 20051117
  Transmission Date: 20060501
  Serious: Yes (Other)
  Sender: FDA-Public Use
  Company Number: 2005JP002106

PATIENT
  Age: 85 Year
  Sex: Female
  Weight: 35 kg

DRUGS (5)
  1. FUNGUARD(MICAFUNGIN) INJECTION [Suspect]
     Indication: PULMONARY MYCOSIS
     Dosage: 7.52 MG, UID/QD, IV DRIP
     Route: 041
     Dates: start: 20051021, end: 20051021
  2. CLEANAL (FUDOSTEINE) TABLET [Concomitant]
  3. MUCOSOLVAN - SLOW RELEASE (AMBRIXOL HYDROCHLORIDE) CAPSULE [Concomitant]
  4. FURTULON (DOXIFLURIDINE)CAPSULE [Concomitant]
  5. MEROPEN (MEROPENEM) INJECTION [Concomitant]

REACTIONS (9)
  - BLOOD PRESSURE DIASTOLIC DECREASED [None]
  - CHILLS [None]
  - DYSPHORIA [None]
  - HYPOAESTHESIA [None]
  - HYPOAESTHESIA ORAL [None]
  - INFUSION RELATED REACTION [None]
  - NAUSEA [None]
  - PYREXIA [None]
  - VOMITING [None]
